FAERS Safety Report 7364935-2 (Version None)
Quarter: 2011Q1

REPORT INFORMATION
  Report Type: 
  Country: None (occurrence: None)
  Receive Date: 20110311
  Receipt Date: 20110223
  Transmission Date: 20110831
  Serious: Yes (Disabling, Other)
  Sender: FDA-Public Use
  Company Number: 2010MA003051

PATIENT
  Sex: Male

DRUGS (1)
  1. METOCLOPRAMIDE [Suspect]
     Indication: GASTROOESOPHAGEAL REFLUX DISEASE
     Dosage: PO
     Route: 048
     Dates: start: 20070801, end: 20090701

REACTIONS (14)
  - DEFORMITY [None]
  - MENTAL DISORDER [None]
  - ECONOMIC PROBLEM [None]
  - EAR PAIN [None]
  - TARDIVE DYSKINESIA [None]
  - CONFUSIONAL STATE [None]
  - INJURY [None]
  - DRUG INEFFECTIVE [None]
  - TRISMUS [None]
  - PAIN [None]
  - EXTRAPYRAMIDAL DISORDER [None]
  - INCORRECT DRUG ADMINISTRATION DURATION [None]
  - PAIN IN JAW [None]
  - HEADACHE [None]
